FAERS Safety Report 7513952-8 (Version None)
Quarter: 2011Q2

REPORT INFORMATION
  Report Type: 
  Country: None (occurrence: None)
  Receive Date: 20110531
  Receipt Date: 20090930
  Transmission Date: 20111010
  Serious: Yes (Death, Other)
  Sender: FDA-Public Use
  Company Number: US-BAYER-200934660NA

PATIENT
  Age: 59 Year
  Sex: Male
  Weight: 151.47 kg

DRUGS (18)
  1. TRASYLOL [Suspect]
     Indication: MITRAL VALVE REPAIR
     Dosage: 50 ML, Q1HR
     Dates: start: 20050330, end: 20050330
  2. NORVASC [Concomitant]
     Dosage: 10 MG, QD
     Route: 048
  3. EPINEPHRINE [Concomitant]
     Dosage: 3-7 MCG, UNK
     Route: 042
     Dates: start: 20050330, end: 20050330
  4. VASOTEC [Concomitant]
     Dosage: 20 MG, BID
     Route: 048
  5. FLOMAX [Concomitant]
     Dosage: 0.4 MG, BID
     Route: 048
  6. TRASYLOL [Suspect]
     Dosage: UNK
     Route: 042
     Dates: start: 20050401
  7. ATENOLOL [Concomitant]
     Dosage: 50 MG, QD
     Route: 048
  8. VANCOMYCIN [Concomitant]
     Dosage: 1 G, UNK
     Route: 042
     Dates: start: 20050330, end: 20050330
  9. GLYCOPYRROLATE [Concomitant]
     Dosage: 1.0 UNK, UNK
     Route: 042
     Dates: start: 20050330, end: 20050330
  10. IBUPROFEN [Concomitant]
     Indication: LIGAMENT RUPTURE
     Dosage: 80 MG, TID
     Route: 048
  11. PROPOFOL [Concomitant]
     Dosage: 140 MG, UNK
     Route: 042
     Dates: start: 20050330, end: 20050330
  12. ATROPINE [Concomitant]
     Dosage: 0.6 UNK, UNK
     Route: 030
     Dates: start: 20050330, end: 20050330
  13. PHENYLEPHRINE HCL [Concomitant]
     Dosage: 3 MG, UNK
     Route: 042
     Dates: start: 20050330, end: 20050330
  14. LEVOPHED [Concomitant]
     Dosage: UNK
     Dates: start: 20050330, end: 20050330
  15. TRASYLOL [Suspect]
     Indication: CARDIAC OPERATION
     Dosage: 1 ML, ONCE, TEST DOSE
     Route: 042
     Dates: start: 20050330, end: 20050330
  16. TRASYLOL [Suspect]
     Indication: AORTIC VALVE REPLACEMENT
     Dosage: 200 ML, ONCE, LOADING DOSE
     Route: 042
     Dates: start: 20050330, end: 20050330
  17. PANCURONIUM BROMIDE [Concomitant]
     Dosage: 17 MG, UNK
     Route: 042
     Dates: start: 20050330, end: 20050330
  18. DILAUDID [Concomitant]
     Dosage: 4 MG, UNK
     Route: 042
     Dates: start: 20050330, end: 20050330

REACTIONS (8)
  - ANXIETY [None]
  - UNEVALUABLE EVENT [None]
  - FEAR [None]
  - ANHEDONIA [None]
  - DEPRESSION [None]
  - PAIN [None]
  - INJURY [None]
  - RENAL FAILURE [None]
